FAERS Safety Report 8777900 (Version 1)
Quarter: 2012Q4

REPORT INFORMATION
  Report Type: 
  Country: US (occurrence: US)
  Receive Date: 20120912
  Receipt Date: 20120912
  Transmission Date: 20130627
  Serious: No
  Sender: FDA-Public Use
  Company Number: US-ASTRAZENECA-2012SE60575

PATIENT
  Age: 17 Year
  Sex: Female

DRUGS (5)
  1. PRILOSEC [Suspect]
     Indication: GASTROOESOPHAGEAL REFLUX DISEASE
     Route: 048
     Dates: start: 201103
  2. DEMEROL [Concomitant]
     Indication: NAUSEA
  3. PHENERGAN [Concomitant]
     Indication: NAUSEA
  4. HYDROCODONE [Concomitant]
     Indication: PAIN
  5. TRAMADOL [Concomitant]
     Indication: PAIN

REACTIONS (7)
  - Exposure during pregnancy [Recovered/Resolved]
  - Erosive oesophagitis [Unknown]
  - Nausea [Unknown]
  - Abdominal pain [Unknown]
  - Gastric ulcer [Unknown]
  - Nephrolithiasis [Unknown]
  - Drug ineffective [Unknown]
